FAERS Safety Report 7657923-X (Version None)
Quarter: 2011Q3

REPORT INFORMATION
  Report Type: 
  Country: None (occurrence: None)
  Receive Date: 20110805
  Receipt Date: 20091203
  Transmission Date: 20111222
  Serious: No
  Sender: FDA-Public Use
  Company Number: 2009BI041098

PATIENT
  Age: 48 Year
  Sex: Male

DRUGS (1)
  1. TYSABRI [Suspect]
     Indication: MULTIPLE SCLEROSIS
     Route: 042
     Dates: start: 20091120

REACTIONS (13)
  - PRURITUS [None]
  - CHILLS [None]
  - RASH PRURITIC [None]
  - DIARRHOEA [None]
  - PYREXIA [None]
  - INFLUENZA LIKE ILLNESS [None]
  - PAIN [None]
  - PENILE BLISTER [None]
  - RASH [None]
  - BREAKTHROUGH PAIN [None]
  - DYSARTHRIA [None]
  - HEADACHE [None]
  - MUSCLE SPASTICITY [None]
